FAERS Safety Report 15986107 (Version 1)
Quarter: 2019Q1

REPORT INFORMATION
  Report Type: Spontaneous
  Country: US (occurrence: US)
  Receive Date: 20190220
  Receipt Date: 20190220
  Transmission Date: 20190418
  Serious: Yes (Hospitalization)
  Sender: FDA-Public Use
  Company Number: None

PATIENT
  Age: 54 Year
  Sex: Female

DRUGS (7)
  1. OLANZAPINE 2.5 MG TABLETS [Concomitant]
     Active Substance: OLANZAPINE
     Dates: start: 20190217
  2. TYKERB [Suspect]
     Active Substance: LAPATINIB DITOSYLATE
     Indication: BREAST CANCER FEMALE
     Route: 048
  3. CAPECITABINE. [Suspect]
     Active Substance: CAPECITABINE
     Indication: BREAST CANCER FEMALE
     Route: 048
  4. DIPHENOXYLATE/ATROPINE 2.5 MG TABLETS [Concomitant]
     Dates: start: 20190208
  5. DEXAMETHASONE 4 MG TABLETS [Concomitant]
     Dates: start: 20190108
  6. POTASSIUM CL MICRO 20 MEQ ER TABLETS [Concomitant]
     Dates: start: 20190201
  7. LORAZEPAM 0.5 MG TABLETS [Concomitant]
     Dates: start: 20190125

REACTIONS (1)
  - Diarrhoea [None]

NARRATIVE: CASE EVENT DATE: 20190219
